FAERS Safety Report 8545729-9 (Version None)
Quarter: 2012Q3

REPORT INFORMATION
  Report Type: 
  Country: None (occurrence: None)
  Receive Date: 20120727
  Receipt Date: 20120723
  Transmission Date: 20120928
  Serious: Yes (Hospitalization)
  Sender: FDA-Public Use
  Company Number: BR-ROCHE-1091865

PATIENT
  Sex: Female
  Weight: 75 kg

DRUGS (5)
  1. DIAMICRON [Concomitant]
  2. LANTUS [Concomitant]
  3. DEFLAZACORT [Concomitant]
  4. MABTHERA [Suspect]
     Indication: RHEUMATOID ARTHRITIS
     Route: 042
     Dates: start: 20100901, end: 20120203
  5. GLICLAZIDE [Concomitant]

REACTIONS (2)
  - CATARACT [None]
  - DIABETES MELLITUS INADEQUATE CONTROL [None]
